FAERS Safety Report 13342379 (Version 1)
Quarter: 2017Q1

REPORT INFORMATION
  Report Type: Spontaneous
  Country: US (occurrence: US)
  Receive Date: 20170316
  Receipt Date: 20170316
  Transmission Date: 20170428
  Serious: No
  Sender: FDA-Public Use
  Company Number: US-BAYER-2017-042694

PATIENT
  Age: 25 Year
  Sex: Female
  Weight: 94.97 kg

DRUGS (4)
  1. MIRALAX [Suspect]
     Active Substance: POLYETHYLENE GLYCOL 3350
     Indication: GASTROINTESTINAL DISORDER
     Dosage: 1 DF, UNK
     Route: 048
  2. ANTI-NAUSEA [PROCHLORPERAZINE MALEATE] [Concomitant]
     Dosage: UNK
  3. ZOFRAN [Concomitant]
     Active Substance: ONDANSETRON HYDROCHLORIDE
     Dosage: UNK
  4. IRON COMPLEX [Concomitant]
     Dosage: UNK

REACTIONS (8)
  - Adverse reaction [Recovered/Resolved]
  - Visual impairment [Recovered/Resolved]
  - Malaise [Unknown]
  - Placental disorder [Unknown]
  - Exposure during pregnancy [Unknown]
  - Expired product administered [Unknown]
  - General physical health deterioration [Not Recovered/Not Resolved]
  - Swelling [Recovered/Resolved]

NARRATIVE: CASE EVENT DATE: 20090407
